FAERS Safety Report 7199778-6 (Version None)
Quarter: 2010Q4

REPORT INFORMATION
  Report Type: 
  Country: None (occurrence: None)
  Receive Date: 20101228
  Receipt Date: 20100127
  Transmission Date: 20110411
  Serious: No
  Sender: FDA-Public Use
  Company Number: US-KINGPHARMUSA00001-K201000104

PATIENT
  Sex: Female
  Weight: 70.748 kg

DRUGS (6)
  1. CORGARD [Suspect]
     Indication: PALPITATIONS
     Dosage: 40 MG, BID
     Route: 048
  2. CORGARD [Suspect]
     Indication: TACHYCARDIA
     Dosage: 60 MG, BID
     Route: 048
  3. CORGARD [Suspect]
     Dosage: 40 MG, BID
     Route: 048
  4. PROTONIX [Concomitant]
     Indication: GASTROOESOPHAGEAL REFLUX DISEASE
     Dosage: UNK
  5. ATIVAN [Concomitant]
     Indication: ANXIETY
     Dosage: 2 DF, BID
  6. FLOVENT [Concomitant]
     Dosage: 2 DF, BID
     Route: 048

REACTIONS (2)
  - BLOOD PRESSURE INCREASED [None]
  - PRURITUS [None]
